FAERS Safety Report 23238804 (Version 3)
Quarter: 2024Q1

REPORT INFORMATION
  Report Type: Spontaneous
  Country: BR (occurrence: BR)
  Receive Date: 20231129
  Receipt Date: 20240313
  Transmission Date: 20240409
  Serious: Yes (Other)
  Sender: FDA-Public Use
  Company Number: BR-SANDOZ-SDZ2023BR060495

PATIENT
  Sex: Female

DRUGS (1)
  1. DOXYCYCLINE [Suspect]
     Active Substance: DOXYCYCLINE
     Indication: Product used for unknown indication
     Dosage: 100 MG
     Route: 065

REACTIONS (6)
  - Toxicity to various agents [Unknown]
  - Pruritus [Unknown]
  - Vulvovaginal candidiasis [Unknown]
  - Lichen planopilaris [Unknown]
  - Hypersensitivity [Unknown]
  - Abdominal pain upper [Unknown]
